FAERS Safety Report 15221539 (Version 1)
Quarter: 2018Q3

REPORT INFORMATION
  Report Type: Spontaneous
  Country: GB (occurrence: GB)
  Receive Date: 20180731
  Receipt Date: 20180731
  Transmission Date: 20181010
  Serious: Yes (Other)
  Sender: FDA-Public Use
  Company Number: GB-SA-2018SA115879

PATIENT
  Age: 61 Year
  Sex: Male

DRUGS (12)
  1. PREDNISOLONE. [Suspect]
     Active Substance: PREDNISOLONE
     Indication: IMMUNOSUPPRESSION
     Dosage: 5 MG, QD
     Route: 065
     Dates: start: 1995
  2. CYCLOSPORIN [Suspect]
     Active Substance: CYCLOSPORINE
     Indication: IMMUNOSUPPRESSION
     Dosage: 100 MG, QD
     Dates: start: 1995
  3. DEPOMEDRONE [Suspect]
     Active Substance: METHYLPREDNISOLONE ACETATE
     Indication: MUSCULOSKELETAL STIFFNESS
  4. TRIAMCINOLONE ACETONIDE. [Suspect]
     Active Substance: TRIAMCINOLONE ACETONIDE
     Indication: OEDEMA PERIPHERAL
  5. TRIAMCINOLONE ACETONIDE. [Suspect]
     Active Substance: TRIAMCINOLONE ACETONIDE
     Indication: ARTHRALGIA
     Dosage: UNK UNK,UNK
     Route: 042
     Dates: start: 2005
  6. PREDNISOLONE. [Suspect]
     Active Substance: PREDNISOLONE
     Dosage: 10 MG,QD
     Route: 065
  7. ETHAMBUTOL [Suspect]
     Active Substance: ETHAMBUTOL HYDROCHLORIDE
     Indication: MYCOBACTERIUM KANSASII INFECTION
     Dosage: 1000 MG,QD
     Route: 065
  8. TRIAMCINOLONE ACETONIDE. [Suspect]
     Active Substance: TRIAMCINOLONE ACETONIDE
     Indication: MUSCULOSKELETAL STIFFNESS
  9. CYCLOSPORIN [Suspect]
     Active Substance: CYCLOSPORINE
     Dosage: 200 MG, QD
  10. DEPOMEDRONE [Suspect]
     Active Substance: METHYLPREDNISOLONE ACETATE
     Indication: ARTHRALGIA
     Dosage: UNK UNK,UNK
     Route: 030
     Dates: start: 2005
  11. DEPOMEDRONE [Suspect]
     Active Substance: METHYLPREDNISOLONE ACETATE
     Indication: OEDEMA PERIPHERAL
  12. AZATHIOPRINE. [Suspect]
     Active Substance: AZATHIOPRINE
     Indication: IMMUNOSUPPRESSION
     Dosage: UNK UNK,UNK
     Route: 065
     Dates: start: 1995

REACTIONS (10)
  - Product use in unapproved indication [Unknown]
  - Optic neuritis [Not Recovered/Not Resolved]
  - Mycobacterium kansasii infection [Recovering/Resolving]
  - Swelling [Recovering/Resolving]
  - Blindness [Not Recovered/Not Resolved]
  - Musculoskeletal stiffness [Recovering/Resolving]
  - Tendon rupture [Recovering/Resolving]
  - Pain [Recovering/Resolving]
  - Visual acuity reduced [Not Recovered/Not Resolved]
  - Tenosynovitis [Recovering/Resolving]

NARRATIVE: CASE EVENT DATE: 200812
